FAERS Safety Report 8470602-4 (Version None)
Quarter: 2012Q2

REPORT INFORMATION
  Report Type: 
  Country: None (occurrence: None)
  Receive Date: 20120627
  Receipt Date: 20120621
  Transmission Date: 20120825
  Serious: Yes (Hospitalization, Other)
  Sender: FDA-Public Use
  Company Number: PHHY2012CH053717

PATIENT
  Age: 70 Year
  Sex: Female

DRUGS (10)
  1. PREDNISONE TAB [Interacting]
     Dosage: 1 MG, QID
     Route: 048
     Dates: end: 20120401
  2. ENALAPRIL MALEATE AND HYDROCHLOROTHIAZIDE [Interacting]
     Dosage: 1 DF, QD
     Route: 048
     Dates: end: 20120410
  3. MARCUMAR [Suspect]
     Dosage: 3 MG, PRN
     Route: 048
     Dates: end: 20120412
  4. PANTOPRAZOLE [Concomitant]
     Dosage: 40 MG, QD
     Route: 048
  5. CALCIMAGON-D3 [Concomitant]
     Dosage: 1 DF, QD
     Route: 048
  6. AMILORIDE HCL AND HYDROCHLOROTHIAZIDE [Interacting]
     Dosage: 1 DF, QD
     Route: 048
     Dates: end: 20120410
  7. LORAZEPAM [Interacting]
     Dosage: 1 DF, QD
     Route: 060
  8. TRANSIPEG [Concomitant]
     Route: 048
     Dates: end: 20120401
  9. FORADIL [Interacting]
     Dosage: 1 DF, BID
  10. AXOTIDE [Concomitant]
     Dosage: 1 DF, QID

REACTIONS (17)
  - HYPOPHOSPHATAEMIA [None]
  - DRUG INTERACTION [None]
  - BLOOD OSMOLARITY DECREASED [None]
  - EPISTAXIS [None]
  - HYPONATRAEMIA [None]
  - MELAENA [None]
  - ELECTROLYTE IMBALANCE [None]
  - HYPOKALAEMIA [None]
  - CONTUSION [None]
  - LOSS OF CONSCIOUSNESS [None]
  - HYPOTENSION [None]
  - NAUSEA [None]
  - INTERNATIONAL NORMALISED RATIO INCREASED [None]
  - HYPOCHLORAEMIA [None]
  - FALL [None]
  - DIZZINESS [None]
  - HYPOCALCAEMIA [None]
